FAERS Safety Report 8352050-0 (Version None)
Quarter: 2012Q2

REPORT INFORMATION
  Report Type: 
  Country: None (occurrence: None)
  Receive Date: 20120511
  Receipt Date: 20120503
  Transmission Date: 20120825
  Serious: Yes (Hospitalization)
  Sender: FDA-Public Use
  Company Number: US-BAYER-2011-123162

PATIENT
  Age: 37 Year
  Sex: Female
  Weight: 120.18 kg

DRUGS (11)
  1. HYDROCODONE BITARTRATE [Concomitant]
     Indication: PAIN
  2. BENZONATATE [Concomitant]
     Dosage: 100 MG, EVERY 8 HOURS AS NEEDED
  3. LIDOCAINE [Concomitant]
     Indication: PAIN
  4. LIDOCAINE [Concomitant]
     Indication: PLEURITIC PAIN
  5. HYDROCHLOROTHIAZIDE [Concomitant]
  6. BENICAR HCT [Concomitant]
     Dosage: UNK 40/12.5 MG, DAILY
  7. TUSSICAPS [Concomitant]
     Dosage: 10-8MG EVERY 12 HOURS AS NEEDED
  8. MUCINEX DM [Concomitant]
     Route: 048
  9. AVELOX [Concomitant]
     Dosage: 400 MG, EVERY DAY
  10. YAZ [Suspect]
     Indication: CONTRACEPTION
     Dosage: UNK
     Dates: start: 20080101, end: 20091213
  11. LEXAPRO [Concomitant]
     Dosage: 20 MG EVERY DAY

REACTIONS (8)
  - HYPOTENSION [None]
  - PLEURAL EFFUSION [None]
  - DYSPNOEA [None]
  - PAIN [None]
  - DEPRESSION [None]
  - INJURY [None]
  - PLEURITIC PAIN [None]
  - PULMONARY EMBOLISM [None]
